FAERS Safety Report 7722459-4 (Version None)
Quarter: 2011Q3

REPORT INFORMATION
  Report Type: 
  Country: None (occurrence: None)
  Receive Date: 20110831
  Receipt Date: 20110829
  Transmission Date: 20111222
  Serious: No
  Sender: FDA-Public Use
  Company Number: US-TEVA-295210USA

PATIENT
  Sex: Female

DRUGS (4)
  1. PROAIR HFA [Suspect]
     Route: 055
  2. MELOXICAM [Concomitant]
  3. PREDNISONE [Concomitant]
  4. BENZONATATE [Concomitant]

REACTIONS (2)
  - DYSPNOEA [None]
  - ASTHMA [None]
